FAERS Safety Report 18801662 (Version 2)
Quarter: 2021Q1

REPORT INFORMATION
  Report Type: Spontaneous
  Country: TR (occurrence: TR)
  Receive Date: 20210128
  Receipt Date: 20210209
  Transmission Date: 20210419
  Serious: Yes (Life-Threatening, Hospitalization)
  Sender: FDA-Public Use
  Company Number: TR-FRESENIUS KABI-FK202100833

PATIENT
  Age: 75 Year
  Sex: Male
  Weight: 75 kg

DRUGS (1)
  1. KABIVEN [Suspect]
     Active Substance: AMINO ACIDS\ANHYDROUS DEXTROSE\CALCIUM CHLORIDE\MAGNESIUM SULFATE HEPTAHYDRATE\POTASSIUM CHLORIDE\SODIUM ACETATE\SODIUM GLYCEROPHOSPHATE ANHYDROUS\SOYBEAN OIL
     Indication: NUTRITIONAL SUPPLEMENTATION
     Route: 042
     Dates: start: 20201210, end: 20201230

REACTIONS (2)
  - Candida infection [Recovered/Resolved]
  - Product contamination [Unknown]

NARRATIVE: CASE EVENT DATE: 20201217
